FAERS Safety Report 22799546 (Version 5)
Quarter: 2023Q4

REPORT INFORMATION
  Report Type: Report from Study
  Country: US (occurrence: US)
  Receive Date: 20230808
  Receipt Date: 20231205
  Transmission Date: 20240110
  Serious: Yes (Other)
  Sender: FDA-Public Use
  Company Number: US-REGENERON PHARMACEUTICALS, INC.-2023-097732

PATIENT
  Sex: Female

DRUGS (1)
  1. EVINACUMAB [Suspect]
     Active Substance: EVINACUMAB
     Indication: Type IIa hyperlipidaemia
     Dosage: UNK, MONTHLY

REACTIONS (16)
  - Syncope [Unknown]
  - Tremor [Unknown]
  - Blood pressure fluctuation [Unknown]
  - Balance disorder [Unknown]
  - Gait disturbance [Unknown]
  - Fatigue [Not Recovered/Not Resolved]
  - Muscle spasms [Recovered/Resolved]
  - Fall [Unknown]
  - Somnolence [Unknown]
  - Fatigue [Recovering/Resolving]
  - Muscular weakness [Unknown]
  - Pain in extremity [Recovered/Resolved]
  - Dizziness [Unknown]
  - Dizziness [Unknown]
  - Nasopharyngitis [Not Recovered/Not Resolved]
  - Pain in extremity [Unknown]

NARRATIVE: CASE EVENT DATE: 20230101
